FAERS Safety Report 4326309-8 (Version None)
Quarter: 2004Q1

REPORT INFORMATION
  Report Type: 
  Country: None (occurrence: None)
  Receive Date: 20040325
  Receipt Date: 20040316
  Transmission Date: 20041129
  Serious: Yes (Hospitalization)
  Sender: FDA-Public Use
  Company Number: 022

PATIENT
  Age: 9 Year
  Sex: Male

DRUGS (3)
  1. AMOXICILLIN [Suspect]
     Indication: MALAISE
     Dosage: 250 MG TID
  2. AMOXICILLIN [Suspect]
     Indication: PHARYNGOLARYNGEAL PAIN
     Dosage: 250 MG TID
  3. AMOXICILLIN [Suspect]
     Indication: PYREXIA
     Dosage: 250 MG TID

REACTIONS (1)
  - RASH [None]
